FAERS Safety Report 17458276 (Version 3)
Quarter: 2020Q1

REPORT INFORMATION
  Report Type: Spontaneous
  Country: US (occurrence: US)
  Receive Date: 20200225
  Receipt Date: 20200304
  Transmission Date: 20200409
  Serious: Yes (Other)
  Sender: FDA-Public Use
  Company Number: US-ASTRAZENECA-2020SE27220

PATIENT
  Age: 645 Month
  Sex: Male
  Weight: 86.2 kg

DRUGS (5)
  1. HUMULIN NOS [Concomitant]
     Active Substance: INSULIN HUMAN
     Indication: DRUG THERAPY
     Dosage: 20-30 UNITS
  2. BYDUREON [Suspect]
     Active Substance: EXENATIDE
     Indication: TYPE 2 DIABETES MELLITUS
     Dosage: ONCE A WEEK
     Route: 065
  3. HUMULIN NOS [Concomitant]
     Active Substance: INSULIN HUMAN
     Indication: PRODUCT DOSE OMISSION
     Dosage: 20-30 UNITS
  4. HUMULIN NOS [Concomitant]
     Active Substance: INSULIN HUMAN
     Indication: PRODUCT DOSE OMISSION
     Dosage: 20-30 UNITS.
  5. HUMULIN NOS [Concomitant]
     Active Substance: INSULIN HUMAN
     Indication: DRUG THERAPY
     Dosage: 20-30 UNITS.

REACTIONS (11)
  - Feeling abnormal [Not Recovered/Not Resolved]
  - Blood glucose increased [Unknown]
  - Injection site pain [Unknown]
  - Intentional product misuse [Unknown]
  - Drug dose omission by device [Unknown]
  - Feeling of body temperature change [Unknown]
  - Cold sweat [Unknown]
  - Influenza [Not Recovered/Not Resolved]
  - Device issue [Unknown]
  - Blood glucose fluctuation [Unknown]
  - Injection site mass [Recovered/Resolved]

NARRATIVE: CASE EVENT DATE: 202002
